FAERS Safety Report 14068211 (Version 1)
Quarter: 2017Q4

REPORT INFORMATION
  Report Type: Spontaneous
  Country: US (occurrence: US)
  Receive Date: 20171009
  Receipt Date: 20171009
  Transmission Date: 20180321
  Serious: Yes (Life-Threatening)
  Sender: FDA-Public Use
  Company Number: None

PATIENT
  Age: 64 Year
  Sex: Female
  Weight: 90 kg

DRUGS (1)
  1. HYDROCODONE [Suspect]
     Active Substance: HYDROCODONE
     Indication: PROCEDURAL PAIN
     Route: 048
     Dates: start: 20171005, end: 20171008

REACTIONS (2)
  - Drug ineffective [None]
  - Blood pressure increased [None]

NARRATIVE: CASE EVENT DATE: 20171008
